APPROVED DRUG PRODUCT: CYTARABINE
Active Ingredient: CYTARABINE
Strength: 2GM/VIAL
Dosage Form/Route: INJECTABLE;INJECTION
Application: A211938 | Product #001 | TE Code: AP
Applicant: GLAND PHARMA LTD
Approved: Dec 23, 2019 | RLD: No | RS: No | Type: RX